FAERS Safety Report 5056075-2 (Version None)
Quarter: 2006Q3

REPORT INFORMATION
  Report Type: 
  Country: None (occurrence: None)
  Receive Date: 20060717
  Receipt Date: 20060717
  Transmission Date: 20061208
  Serious: Yes (Other)
  Sender: FDA-Public Use
  Company Number: None

PATIENT
  Sex: Male
  Weight: 16 kg

DRUGS (1)
  1. PEGASPARGASE ONCASPAR 750 IU PER ML ENZON PHARMACEUTICALS [Suspect]
     Indication: LEUKAEMIA
     Dosage: 1650 UNITS IM [4 TIMES]
     Route: 030
     Dates: start: 20060122, end: 20060713

REACTIONS (3)
  - BLOOD PRESSURE INCREASED [None]
  - SWELLING FACE [None]
  - VOMITING [None]
